FAERS Safety Report 4834985-6 (Version None)
Quarter: 2005Q4

REPORT INFORMATION
  Report Type: 
  Country: None (occurrence: None)
  Receive Date: 20051114
  Receipt Date: 20051103
  Transmission Date: 20060501
  Serious: Yes (Life-Threatening, Hospitalization, Other)
  Sender: FDA-Public Use
  Company Number: USA0508106691

PATIENT
  Age: 5 Year
  Sex: Male

DRUGS (1)
  1. STRATTERA [Suspect]
     Dates: start: 20050812, end: 20050812

REACTIONS (12)
  - ACCIDENTAL DRUG INTAKE BY CHILD [None]
  - ACCIDENTAL OVERDOSE [None]
  - ATROPHY [None]
  - BRAIN HYPOXIA [None]
  - CEREBRAL VENTRICLE DILATATION [None]
  - CONVULSION [None]
  - ISCHAEMIA [None]
  - METABOLIC DISORDER [None]
  - MUSCULOSKELETAL STIFFNESS [None]
  - PUPIL FIXED [None]
  - RESPIRATORY DEPRESSION [None]
  - STAPHYLOCOCCAL INFECTION [None]
